FAERS Safety Report 9742413 (Version 3)
Quarter: 2014Q1

REPORT INFORMATION
  Report Type: Spontaneous
  Country: DE (occurrence: DE)
  Receive Date: 20131210
  Receipt Date: 20140225
  Transmission Date: 20141002
  Serious: Yes (Hospitalization, Other)
  Sender: FDA-Public Use
  Company Number: DE-NAPPMUNDI-DEU-2013-0011593

PATIENT
  Age: 65 Year
  Sex: Male

DRUGS (8)
  1. GINGIUM [Concomitant]
     Dosage: 120 MG, PRN
  2. TOREM                              /01036501/ [Concomitant]
     Dosage: 10 MG, BID
  3. SEVREDOL [Concomitant]
     Dosage: UNK, PRN
  4. MSI 200 MG MUNDIPHARMA [Suspect]
     Indication: PAIN
     Dosage: 5.5 MG, DAILY
     Route: 037
     Dates: start: 2006, end: 20130326
  5. MSI 200 MG MUNDIPHARMA [Suspect]
     Dosage: 10 MG, DAILY
     Route: 037
     Dates: start: 20130326
  6. ARIXTRA [Concomitant]
     Dosage: 2.5 UNK, DAILY
     Route: 058
  7. BENURON [Concomitant]
     Dosage: UNK, TID
  8. OMEPRAZOL                          /00661201/ [Concomitant]
     Dosage: 20 MG, BID

REACTIONS (9)
  - Overdose [Unknown]
  - Drug withdrawal syndrome [Unknown]
  - Device connection issue [Unknown]
  - Device infusion issue [Unknown]
  - Wrong technique in drug usage process [Unknown]
  - Memory impairment [Unknown]
  - Abdominal discomfort [Unknown]
  - Restlessness [Recovering/Resolving]
  - Nausea [Recovering/Resolving]
